FAERS Safety Report 10300656 (Version 1)
Quarter: 2014Q3

REPORT INFORMATION
  Report Type: Spontaneous
  Country: SE (occurrence: SE)
  Receive Date: 20140714
  Receipt Date: 20140714
  Transmission Date: 20150326
  Serious: Yes (Hospitalization)
  Sender: FDA-Public Use
  Company Number: SE-ROCHE-1429497

PATIENT
  Age: 5 Year
  Sex: Male

DRUGS (1)
  1. ROCEPHALIN [Suspect]
     Active Substance: CEFTRIAXONE
     Indication: HAEMOPHILUS INFECTION
     Route: 065
     Dates: start: 20140515

REACTIONS (4)
  - Urticaria [Unknown]
  - Hypersensitivity [Unknown]
  - Arthralgia [Unknown]
  - Swelling face [Unknown]

NARRATIVE: CASE EVENT DATE: 20140523
